FAERS Safety Report 10339532 (Version 1)
Quarter: 2014Q3

REPORT INFORMATION
  Report Type: Spontaneous
  Country: US (occurrence: None)
  Receive Date: 20140723
  Receipt Date: 20140723
  Transmission Date: 20150326
  Serious: Yes (Life-Threatening, Disabling)
  Sender: FDA-Public Use
  Company Number: None

PATIENT
  Age: 51 Year
  Sex: Female
  Weight: 58.97 kg

DRUGS (8)
  1. ZOLPIDEM [Concomitant]
     Active Substance: ZOLPIDEM\ZOLPIDEM TARTRATE
  2. OMERPRAZOLE DELAYED RELEASE CAPSULES 20MG (OMEPRAZOLE) [Concomitant]
     Active Substance: OMEPRAZOLE
  3. FISH OIL [Concomitant]
     Active Substance: FISH OIL
  4. PROCRIT [Suspect]
     Active Substance: ERYTHROPOIETIN
     Indication: HEPATITIS C
     Dosage: 1 SHOT?DAILY?INJECTION
     Route: 042
     Dates: start: 201109, end: 201112
  5. DICLOFFENAC POTASSIUM [Concomitant]
  6. TRAMADOL [Concomitant]
     Active Substance: TRAMADOL
  7. MULTI-VITAMIN [Concomitant]
     Active Substance: .ALPHA.-TOCOPHEROL ACETATE, DL-\ASCORBIC ACID\CYANOCOBALAMIN\FLUORIDE ION\FOLIC ACID\NIACIN\PYRIDOXINE\RIBOFLAVIN\THIAMINE\VITAMIN A\VITAMIN D
  8. INCIVEK [Suspect]
     Active Substance: TELAPREVIR
     Indication: HEPATITIS C
     Dosage: 2 PILLS?DAILY?MOUTH
     Route: 048
     Dates: start: 201109, end: 201112

REACTIONS (22)
  - Diarrhoea [None]
  - Urticaria [None]
  - Pruritus [None]
  - Amnesia [None]
  - Motor dysfunction [None]
  - Presyncope [None]
  - Rash [None]
  - Speech disorder [None]
  - Headache [None]
  - Anorectal discomfort [None]
  - Blood pressure increased [None]
  - Peripheral swelling [None]
  - Dysstasia [None]
  - Petechiae [None]
  - Social phobia [None]
  - Photophobia [None]
  - Pain in extremity [None]
  - Tic [None]
  - Impaired work ability [None]
  - Abasia [None]
  - Skin injury [None]
  - Fatigue [None]

NARRATIVE: CASE EVENT DATE: 201112
